FAERS Safety Report 13114891 (Version 1)
Quarter: 2017Q1

REPORT INFORMATION
  Report Type: Report from Study
  Country: DE (occurrence: DE)
  Receive Date: 20170113
  Receipt Date: 20170113
  Transmission Date: 20170428
  Serious: Yes (Death, Hospitalization, Other)
  Sender: FDA-Public Use
  Company Number: DE-GILEAD-2016-0250034

PATIENT

DRUGS (15)
  1. IDELALISIB [Suspect]
     Active Substance: IDELALISIB
     Indication: CHRONIC LYMPHOCYTIC LEUKAEMIA
     Dosage: 150 MG, UNK (OVER 90 DAILY DOSES(180 TABLETS) PRESCRIBED)
     Route: 065
     Dates: start: 201504
  2. RITUXIMAB [Concomitant]
     Active Substance: RITUXIMAB
     Dosage: ONE DAY OF TREATMENT
     Dates: start: 201504
  3. RITUXIMAB [Concomitant]
     Active Substance: RITUXIMAB
     Dosage: ONE DAY OF TREATMENT
     Dates: start: 201507
  4. RITUXIMAB [Concomitant]
     Active Substance: RITUXIMAB
     Dosage: ONE DAY OF TREATMENT
     Dates: start: 201508
  5. IDELALISIB [Suspect]
     Active Substance: IDELALISIB
     Dosage: 150 MG, UNK (OVER 30 DAILY DOSES PRESCRIBED)
     Route: 065
     Dates: start: 201506
  6. IDELALISIB [Suspect]
     Active Substance: IDELALISIB
     Dosage: 150 MG, UNK (OVER 60 DAILY DOSES PRESCRIBED)
     Route: 065
     Dates: start: 201507
  7. RITUXIMAB [Concomitant]
     Active Substance: RITUXIMAB
     Dosage: ONE DAY OF TREATMENT
     Route: 065
     Dates: start: 201506
  8. RITUXIMAB [Concomitant]
     Active Substance: RITUXIMAB
     Dosage: ONE DAY OF TREATMENT
     Dates: start: 201509
  9. RITUXIMAB [Concomitant]
     Active Substance: RITUXIMAB
     Dosage: ONE DAY OF TREATMENT
     Dates: start: 201507
  10. IDELALISIB [Suspect]
     Active Substance: IDELALISIB
     Dosage: 150 MG, UNK (OVER 30 DAILY DOSES PRESCRIBED)
     Route: 065
     Dates: start: 201511
  11. IDELALISIB [Suspect]
     Active Substance: IDELALISIB
     Dosage: 150 MG, UNK (OVER 30 DOSES PRESCRIBED)
     Route: 065
     Dates: start: 201505
  12. IDELALISIB [Suspect]
     Active Substance: IDELALISIB
     Dosage: 150 MG, UNK (OVER 30 DAILY DOSES PRESCRIBED)
     Route: 065
     Dates: start: 201512
  13. RITUXIMAB [Concomitant]
     Active Substance: RITUXIMAB
     Dosage: ONE DAY OF TREATMENT
     Dates: start: 201505
  14. RITUXIMAB [Concomitant]
     Active Substance: RITUXIMAB
     Dosage: ONE DAY OF TREATMENT
     Dates: start: 201510
  15. IDELALISIB [Suspect]
     Active Substance: IDELALISIB
     Dosage: 150 MG, UNK (OVER 30 DAILY DOSES PRESCRIBED)
     Route: 065
     Dates: start: 201510

REACTIONS (2)
  - Lymphocytic leukaemia [Unknown]
  - Death [Fatal]
